FAERS Safety Report 21040370 (Version 2)
Quarter: 2022Q3

REPORT INFORMATION
  Report Type: Report from Study
  Country: CN (occurrence: CN)
  Receive Date: 20220704
  Receipt Date: 20220713
  Transmission Date: 20221026
  Serious: Yes (Death, Life-Threatening, Other)
  Sender: FDA-Public Use
  Company Number: CN-BRISTOL-MYERS SQUIBB COMPANY-2022-062470

PATIENT
  Age: 73 Year
  Sex: Male
  Weight: 70 kg

DRUGS (22)
  1. AZACITIDINE [Suspect]
     Active Substance: AZACITIDINE
     Indication: Myelodysplastic syndrome
     Dosage: 7 DAYS WITHIN THE FIRST 9 CALENDAR DAYS OF EACH 28-DAY CYCLE (75 MG/M2,1 IN 1 D
     Route: 058
     Dates: start: 20220415, end: 20220526
  2. VENETOCLAX [Suspect]
     Active Substance: VENETOCLAX
     Indication: Myelodysplastic syndrome
     Dosage: DAYS 1 - 14 OF EACH 28-DAY CYCLE (1 IN 1 D)
     Route: 048
     Dates: start: 20220415, end: 20220531
  3. METFORMIN HYDROCHLORIDE [Concomitant]
     Active Substance: METFORMIN HYDROCHLORIDE
     Indication: Diabetes mellitus
     Dosage: 1 IN 1 D
     Route: 048
     Dates: start: 20220508
  4. LEUCOGEN [Concomitant]
     Active Substance: LEUCOGEN
     Indication: Anaemia
     Dosage: 4 IN 1 D
     Route: 048
     Dates: start: 20220526, end: 20220618
  5. FOLIC ACID [Concomitant]
     Active Substance: FOLIC ACID
     Indication: Anaemia
     Dosage: 3 IN 1 D
     Route: 048
     Dates: start: 20220613, end: 20220618
  6. GLUTATHIONE [Concomitant]
     Active Substance: GLUTATHIONE
     Indication: Prophylaxis
     Dosage: 1 IN 1 D
     Route: 041
     Dates: start: 20220613, end: 20220618
  7. PANTOPRAZOLE SODIUM [Concomitant]
     Active Substance: PANTOPRAZOLE SODIUM
     Indication: Prophylaxis
     Dosage: 1 IN 1 D
     Route: 041
     Dates: start: 20220613, end: 20220618
  8. TRANEXAMIC ACID CHLORINATED INJECTION [Concomitant]
     Indication: Prophylaxis
     Dosage: 1 IN 1 D
     Route: 041
     Dates: start: 20220613, end: 20220618
  9. CALCIUM GLUCONATE [Concomitant]
     Active Substance: CALCIUM GLUCONATE
     Indication: Hypocalcaemia
     Dosage: 1 IN 1 D
     Route: 041
     Dates: start: 20220614, end: 20220616
  10. POSACONAZOLE [Concomitant]
     Active Substance: POSACONAZOLE
     Indication: Pneumonia
     Route: 048
     Dates: start: 20220412
  11. COENZYME Q10 [Concomitant]
     Active Substance: DIETARY SUPPLEMENT\UBIDECARENONE
     Indication: Prophylaxis
     Dosage: 3 IN 1 D
     Route: 048
     Dates: start: 20220412
  12. VITAMIN D2 CALCIUM PHOSPHATE AND CALCIUM GLUCONATE [Concomitant]
     Indication: Hypocalcaemia
     Dosage: 6 GRAIN (2 GRAIN,3 IN 1 D)
     Route: 048
     Dates: start: 20220430
  13. TAMSULOSIN HYDROCHLORIDE [Concomitant]
     Active Substance: TAMSULOSIN HYDROCHLORIDE
     Indication: Benign prostatic hyperplasia
     Dosage: 1 IN 1 D
     Route: 048
     Dates: start: 20220430
  14. SPIRONOLACTONE [Concomitant]
     Active Substance: SPIRONOLACTONE
     Indication: Oedema peripheral
     Dosage: 1 IN 1 D
     Route: 048
     Dates: start: 20220419, end: 20220506
  15. SPIRONOLACTONE [Concomitant]
     Active Substance: SPIRONOLACTONE
     Dosage: 3 IN 1 D
     Route: 048
     Dates: start: 20220507
  16. METFORMIN HYDROCHLORIDE [Concomitant]
     Active Substance: METFORMIN HYDROCHLORIDE
     Indication: Diabetes mellitus
     Dosage: 1 IN 1 D
     Route: 048
     Dates: start: 20220508
  17. METHOXAMINE [Concomitant]
     Active Substance: METHOXAMINE
     Indication: Pneumonia
     Dosage: 2 GRAIN (2 GRAIN,1 IN 1 D)
     Route: 049
     Dates: start: 20220512
  18. FEBUXOSTAT [Concomitant]
     Active Substance: FEBUXOSTAT
     Indication: Blood uric acid increased
     Dosage: 1 IN 1 D
     Route: 048
     Dates: start: 20220520
  19. METHYLCOBALAMIN [Concomitant]
     Active Substance: METHYLCOBALAMIN
     Indication: Anaemia
     Route: 048
     Dates: start: 20220530
  20. METHYLCOBALAMIN [Concomitant]
     Active Substance: METHYLCOBALAMIN
     Route: 048
     Dates: start: 20220614, end: 20220618
  21. VITAMIN C [Concomitant]
     Active Substance: ASCORBIC ACID
     Indication: Prophylaxis
     Route: 041
     Dates: start: 20220613, end: 20220618
  22. PHOSPHOCREATINE SODIUM [Concomitant]
     Active Substance: PHOSPHOCREATINE SODIUM
     Indication: Prophylaxis
     Route: 041
     Dates: start: 20220613, end: 20220618

REACTIONS (4)
  - Pneumonia [Unknown]
  - Sepsis [Unknown]
  - Multiple organ dysfunction syndrome [Fatal]
  - Hypovolaemic shock [Unknown]

NARRATIVE: CASE EVENT DATE: 20220615
